FAERS Safety Report 13781742 (Version 2)
Quarter: 2017Q3

REPORT INFORMATION
  Report Type: Spontaneous
  Country: JP (occurrence: JP)
  Receive Date: 20170724
  Receipt Date: 20170731
  Transmission Date: 20171127
  Serious: Yes (Hospitalization, Other)
  Sender: FDA-Public Use
  Company Number: JP-TEVA-2016-JP-002604J

PATIENT
  Age: 84 Year
  Sex: Female
  Weight: 27 kg

DRUGS (53)
  1. ALFACALCIDOL [Concomitant]
     Active Substance: ALFACALCIDOL
     Indication: OSTEOPOROSIS
     Route: 065
  2. MOSAPRIDE CITRATE HYDRATE [Concomitant]
     Active Substance: MOSAPRIDE CITRATE DIHYDRATE
     Route: 065
     Dates: start: 20150706
  3. ENSURE [Concomitant]
     Active Substance: AMINO ACIDS\DEXTROSE\ELECTROLYTES NOS\SOYBEAN OIL\VITAMINS
     Route: 065
     Dates: start: 20150727, end: 20151218
  4. BIOFERMIN R [Concomitant]
     Active Substance: BACILLUS SUBTILIS\LACTOBACILLUS ACIDOPHILUS\STREPTOCOCCUS FAECAIS
     Route: 065
     Dates: start: 20151120
  5. POPIYODON [Concomitant]
     Route: 065
     Dates: start: 20151116, end: 20151203
  6. TRIMETHOPRIM. [Concomitant]
     Active Substance: TRIMETHOPRIM
     Route: 065
     Dates: start: 20150701, end: 20150809
  7. SOLDEM [Concomitant]
     Active Substance: DEXTROSE\POTASSIUM CHLORIDE\SODIUM CHLORIDE\SODIUM LACTATE
     Indication: LUNG INFECTION
     Route: 065
  8. PREDNISOLONE TABLETS 5MG [Suspect]
     Active Substance: PREDNISOLONE
     Indication: PLASMA CELL MYELOMA
     Dosage: 60 MILLIGRAM DAILY;
     Route: 048
     Dates: start: 20150629
  9. SODIUM RISEDRONATE HYDRATE [Concomitant]
     Active Substance: RISEDRONATE SODIUM HEMI-PENTAHYDRATE
     Indication: OSTEOPOROSIS
     Route: 065
  10. CALONAL [Concomitant]
     Active Substance: ACETAMINOPHEN
     Indication: CATHETER SITE PAIN
     Route: 065
     Dates: start: 20150603, end: 20151204
  11. ACICLOVIR [Concomitant]
     Active Substance: ACYCLOVIR
     Indication: HERPES ZOSTER
     Route: 065
     Dates: start: 20150605, end: 20160104
  12. DIPYRIDAMOLE. [Concomitant]
     Active Substance: DIPYRIDAMOLE
     Route: 065
     Dates: start: 20150715, end: 20150726
  13. DERMOVATE [Concomitant]
     Active Substance: CLOBETASOL
     Indication: ERYTHEMA MULTIFORME
     Route: 065
     Dates: start: 20150715, end: 20151009
  14. ZOLEDRONIC ACID [Concomitant]
     Active Substance: ZOLEDRONIC ACID
     Indication: PROPHYLAXIS
     Route: 065
     Dates: start: 20150803, end: 20150803
  15. BFLUID [Concomitant]
     Active Substance: AMINO ACIDS\DEXTROSE\ELECTROLYTES NOS\VITAMINS
     Indication: LUNG INFECTION
     Route: 065
  16. LIDOCAINE HYDROCHLORIDE. [Concomitant]
     Active Substance: LIDOCAINE HYDROCHLORIDE
     Indication: BLADDER CATHETERISATION
     Route: 061
     Dates: start: 20151114, end: 20151114
  17. KETOPROFEN. [Concomitant]
     Active Substance: KETOPROFEN
     Route: 065
  18. AMOXICILLIN HYDRATE/POTASSIUM CLAVULANATE [Concomitant]
     Route: 065
  19. TRAMAL [Concomitant]
     Active Substance: TRAMADOL
     Route: 065
     Dates: start: 20150703, end: 20151204
  20. NOVAMIN (PROCHLORPERAZINE) [Concomitant]
     Active Substance: PROCHLORPERAZINE
     Indication: NAUSEA
     Dosage: 5 MILLIGRAM DAILY;
     Route: 048
     Dates: start: 20150706, end: 20150713
  21. SODIUM CHLORIDE. [Concomitant]
     Active Substance: SODIUM CHLORIDE
     Dosage: 2 GRAM DAILY;
     Route: 048
     Dates: start: 20150710, end: 20150710
  22. SODIUM CHLORIDE. [Concomitant]
     Active Substance: SODIUM CHLORIDE
     Dosage: 1 GRAM DAILY;
     Route: 048
     Dates: start: 20151031, end: 20151105
  23. SOLULACT [Concomitant]
     Route: 065
     Dates: start: 20151114, end: 20151117
  24. SOLDEM [Concomitant]
     Active Substance: DEXTROSE\POTASSIUM CHLORIDE\SODIUM CHLORIDE\SODIUM LACTATE
     Indication: TUBERCULOUS PLEURISY
     Route: 065
     Dates: start: 20151114, end: 20151117
  25. BORTEZOMIB [Suspect]
     Active Substance: BORTEZOMIB
     Indication: PLASMA CELL MYELOMA
     Dosage: 1.3 MG A WEEK
     Route: 058
     Dates: start: 20150629, end: 20151102
  26. LANSOPRAZOLE. [Concomitant]
     Active Substance: LANSOPRAZOLE
     Indication: CHRONIC GASTRITIS
     Route: 065
  27. SENNOSIDE [Concomitant]
     Active Substance: SENNOSIDES
     Indication: CONSTIPATION
     Dosage: 24 MG AS NECESSARY
     Route: 048
     Dates: start: 20150708, end: 20151206
  28. ZOSYN [Concomitant]
     Active Substance: PIPERACILLIN SODIUM\TAZOBACTAM SODIUM
     Route: 065
     Dates: start: 20151114, end: 20151206
  29. CEFCAPENE PIVOXIL HYDROCHLORIDE [Concomitant]
     Active Substance: CEFCAPENE PIVOXIL HYDROCHLORIDE
     Route: 065
     Dates: start: 20151106, end: 20151110
  30. MELPHALAN. [Suspect]
     Active Substance: MELPHALAN
     Indication: PLASMA CELL MYELOMA
     Dosage: 8 MILLIGRAM DAILY;
     Route: 048
     Dates: start: 20150629, end: 20151102
  31. MAGMITT [Concomitant]
     Active Substance: MAGNESIUM OXIDE
     Indication: CONSTIPATION
     Route: 065
     Dates: start: 20150708, end: 20151206
  32. SODIUM CHLORIDE. [Concomitant]
     Active Substance: SODIUM CHLORIDE
     Dosage: 1 GRAM DAILY;
     Route: 048
     Dates: start: 20150711, end: 20151030
  33. SODIUM CHLORIDE. [Concomitant]
     Active Substance: SODIUM CHLORIDE
     Dosage: 1 GRAM DAILY;
     Route: 048
     Dates: start: 20151226, end: 20160103
  34. PRIMPERAN [Concomitant]
     Active Substance: METOCLOPRAMIDE HYDROCHLORIDE
     Route: 065
     Dates: start: 20150713, end: 20151128
  35. ZOLEDRONIC ACID [Concomitant]
     Active Substance: ZOLEDRONIC ACID
     Indication: BONE LESION
     Route: 065
  36. PL [Concomitant]
     Active Substance: ACETAMINOPHEN\CAFFEINE\PROMETHAZINE\SALICYLAMIDE
     Route: 065
     Dates: start: 20151106, end: 20151110
  37. POTASSIUM CLAVULANATE [Concomitant]
     Active Substance: CLAVULANATE POTASSIUM
     Route: 065
  38. TRAMADOL HYDROCHLORIDE. [Concomitant]
     Active Substance: TRAMADOL HYDROCHLORIDE
     Route: 065
     Dates: start: 20150709, end: 20150723
  39. LIDOCAINE. [Concomitant]
     Active Substance: LIDOCAINE
     Route: 065
     Dates: start: 20151116, end: 20151203
  40. SODIUM CHLORIDE. [Concomitant]
     Active Substance: SODIUM CHLORIDE
     Dosage: 1 GRAM DAILY;
     Route: 048
     Dates: start: 20151106, end: 20151225
  41. BIOFERMIN [Concomitant]
     Active Substance: BACILLUS SUBTILIS\LACTOBACILLUS ACIDOPHILUS\STREPTOCOCCUS FAECAIS
     Route: 065
     Dates: start: 20150810, end: 20151119
  42. BIOFERMIN [Concomitant]
     Active Substance: BACILLUS SUBTILIS\LACTOBACILLUS ACIDOPHILUS\STREPTOCOCCUS FAECAIS
     Dosage: 6 MILLIGRAM DAILY;
     Route: 048
     Dates: start: 20151120
  43. AMOXICILLIN HYDRATE [Concomitant]
     Active Substance: AMOXICILLIN
     Route: 065
     Dates: start: 20160617, end: 20160626
  44. SULFAMETHOXAZOLE [Concomitant]
     Active Substance: SULFAMETHOXAZOLE
     Route: 065
     Dates: start: 20150701, end: 20160809
  45. HEPARIN SODIUM. [Concomitant]
     Active Substance: HEPARIN SODIUM
     Route: 065
  46. AMOBAN [Concomitant]
     Active Substance: ZOPICLONE
     Route: 065
     Dates: start: 20150713, end: 20151009
  47. ACETAMINOPHEN. [Concomitant]
     Active Substance: ACETAMINOPHEN
     Route: 065
     Dates: start: 20150709, end: 20151117
  48. TRAMCET [Concomitant]
     Active Substance: ACETAMINOPHEN\TRAMADOL
     Route: 065
  49. SODIUM CHLORIDE. [Concomitant]
     Active Substance: SODIUM CHLORIDE
     Indication: HYPONATRAEMIA
     Dosage: 1 GRAM DAILY;
     Route: 048
     Dates: start: 20150709, end: 20150709
  50. SODIUM CHLORIDE. [Concomitant]
     Active Substance: SODIUM CHLORIDE
     Dosage: 1 GRAM DAILY;
     Route: 048
     Dates: start: 20160104, end: 20160325
  51. HIRUDOID [Concomitant]
     Active Substance: GLYCOSAMINOGLYCANS
     Indication: ERYTHEMA MULTIFORME
     Route: 065
     Dates: start: 20150715, end: 20151009
  52. LIDOCAINE HYDROCHLORIDE. [Concomitant]
     Active Substance: LIDOCAINE HYDROCHLORIDE
     Indication: BLADDER CATHETERISATION
     Dosage: 3 ML DAILY;
     Route: 061
     Dates: start: 20151114, end: 20151114
  53. BFLUID [Concomitant]
     Active Substance: AMINO ACIDS\DEXTROSE\ELECTROLYTES NOS\VITAMINS
     Indication: TUBERCULOUS PLEURISY
     Route: 065
     Dates: start: 20151117, end: 20151206

REACTIONS (12)
  - Catheter site pain [Unknown]
  - Lung infection [Not Recovered/Not Resolved]
  - Fatigue [Unknown]
  - Upper respiratory tract infection [Unknown]
  - Nausea [Unknown]
  - Hyponatraemia [Unknown]
  - Insomnia [Unknown]
  - Tuberculous pleurisy [Recovered/Resolved]
  - Erythema multiforme [Unknown]
  - Decreased appetite [Unknown]
  - Diarrhoea [Unknown]
  - Constipation [Unknown]

NARRATIVE: CASE EVENT DATE: 20150704
